FAERS Safety Report 21576759 (Version 1)
Quarter: 2022Q4

REPORT INFORMATION
  Report Type: Report from Study
  Country: US (occurrence: US)
  Receive Date: 20221110
  Receipt Date: 20221110
  Transmission Date: 20230112
  Serious: No
  Sender: FDA-Public Use
  Company Number: US-ABBVIE-22K-163-4476021-00

PATIENT
  Sex: Male

DRUGS (5)
  1. HUMIRA [Suspect]
     Active Substance: ADALIMUMAB
     Indication: Crohn^s disease
     Dosage: FIRST ADMIN DATE: 2021 , FORM STRENGTH: 40 MG
     Route: 058
  2. HUMIRA [Suspect]
     Active Substance: ADALIMUMAB
     Dosage: DAY 1, FORM STRENGTH: 40 MG
     Route: 058
     Dates: start: 20210929, end: 20210929
  3. HUMIRA [Suspect]
     Active Substance: ADALIMUMAB
     Dosage: DAY 15, FORM STRENGTH: 40 MG
     Route: 058
     Dates: start: 20211013, end: 20211013
  4. HUMIRA [Suspect]
     Active Substance: ADALIMUMAB
     Dosage: LAST ADMIN DATE: 2022, FORM STRENGTH: 40 MG
     Route: 058
     Dates: start: 20220311
  5. HUMIRA [Suspect]
     Active Substance: ADALIMUMAB
     Dosage: FORM STRENGTH: 40 MG
     Route: 058
     Dates: start: 202205

REACTIONS (4)
  - Fatigue [Recovering/Resolving]
  - Off label use [Unknown]
  - Arthralgia [Recovering/Resolving]
  - Gastrointestinal sounds abnormal [Recovering/Resolving]
